FAERS Safety Report 5644556-X (Version None)
Quarter: 2008Q1

REPORT INFORMATION
  Report Type: 
  Country: None (occurrence: None)
  Receive Date: 20080229
  Receipt Date: 20070301
  Transmission Date: 20080703
  Serious: No
  Sender: FDA-Public Use
  Company Number: A0641708A

PATIENT
  Sex: Female

DRUGS (3)
  1. VALTREX [Suspect]
     Indication: HERPES SIMPLEX
     Route: 065
     Dates: start: 20070208
  2. PEGASYS [Suspect]
     Indication: DRUG USE FOR UNKNOWN INDICATION
     Route: 065
     Dates: start: 20070125
  3. COPEGUS [Suspect]
     Indication: DRUG USE FOR UNKNOWN INDICATION
     Route: 065

REACTIONS (2)
  - NEUTROPHIL COUNT DECREASED [None]
  - WHITE BLOOD CELL COUNT DECREASED [None]
